FAERS Safety Report 25960407 (Version 2)
Quarter: 2025Q4

REPORT INFORMATION
  Report Type: Report from Study
  Country: EU (occurrence: EU)
  Receive Date: 20251027
  Receipt Date: 20251029
  Transmission Date: 20260119
  Serious: Yes (Hospitalization)
  Sender: ABBVIE
  Company Number: EU-ABBVIE-6515387

PATIENT
  Age: 76 Year
  Sex: Male

DRUGS (1)
  1. FOSCARBIDOPA\FOSLEVODOPA [Suspect]
     Active Substance: FOSCARBIDOPA\FOSLEVODOPA
     Indication: Parkinson^s disease
     Dosage: DAILY DOSE: 2.260,8 MG, CRL: 0.22ML/H, CRB: 0.46ML/H, CRH: 0.46ML/H, ED: 0.15ML, LD: 0.8ML
     Route: 058
     Dates: start: 20250226

REACTIONS (8)
  - Acute respiratory failure [Recovered/Resolved with Sequelae]
  - Infusion site erythema [Recovered/Resolved]
  - Hypoxia [Recovered/Resolved with Sequelae]
  - Pneumonia [Recovered/Resolved with Sequelae]
  - Cognitive disorder [Unknown]
  - Mastication disorder [Unknown]
  - Dysphagia [Unknown]
  - Bedridden [Unknown]

NARRATIVE: CASE EVENT DATE: 20250101
